FAERS Safety Report 8063828-5 (Version None)
Quarter: 2012Q1

REPORT INFORMATION
  Report Type: 
  Country: None (occurrence: None)
  Receive Date: 20120117
  Receipt Date: 20120103
  Transmission Date: 20120608
  Serious: Yes (Death)
  Sender: FDA-Public Use
  Company Number: B0773604A

PATIENT
  Age: 77 Year
  Sex: Female

DRUGS (7)
  1. OXYBUTYNIN [Suspect]
     Dosage: UNK/UNK/ORAL
     Route: 048
  2. SALICYLATE (FORMULATION UNKNOWN) (GENERIC) (SALICYLATE) [Suspect]
     Dosage: UNK/UNK/ORAL
     Route: 048
  3. CITALOPRAM (FORMULATION UNKNOWN) (GENERIC) (CITALOPRAM) [Suspect]
     Dosage: UNK/UNK/ORAL
     Route: 048
  4. ALPRAZOLAM [Suspect]
     Dosage: UNK/UNK/ORAL
     Route: 048
  5. ALENDRONATE SODIUM [Suspect]
     Dosage: UNK/UNK/ORAL
     Route: 048
  6. CARVEDILOL [Suspect]
     Dosage: UNK/UNK/ORAL
     Route: 048
  7. NITROGLYCERIN [Suspect]
     Dosage: UNK/UNK/ORAL
     Route: 048

REACTIONS (1)
  - COMPLETED SUICIDE [None]
